FAERS Safety Report 13835315 (Version 1)
Quarter: 2017Q3

REPORT INFORMATION
  Report Type: Spontaneous
  Country: SA (occurrence: SA)
  Receive Date: 20170804
  Receipt Date: 20170804
  Transmission Date: 20171127
  Serious: Yes (Other)
  Sender: FDA-Public Use
  Company Number: SA-AMGEN-SAUSP2017115296

PATIENT
  Age: 16 Year
  Sex: Male

DRUGS (1)
  1. BLINCYTO [Suspect]
     Active Substance: BLINATUMOMAB
     Indication: ACUTE LYMPHOCYTIC LEUKAEMIA RECURRENT
     Dosage: UNK
     Route: 042
     Dates: start: 201701, end: 201703

REACTIONS (3)
  - Graft versus host disease in liver [Recovered/Resolved]
  - Graft versus host disease in gastrointestinal tract [Recovered/Resolved]
  - Graft versus host disease in skin [Recovered/Resolved]

NARRATIVE: CASE EVENT DATE: 2017
